FAERS Safety Report 15500941 (Version 1)
Quarter: 2018Q4

REPORT INFORMATION
  Report Type: Spontaneous
  Country: US (occurrence: US)
  Receive Date: 20181015
  Receipt Date: 20181015
  Transmission Date: 20190205
  Serious: No
  Sender: FDA-Public Use
  Company Number: US-009507513-1805USA011266

PATIENT
  Sex: Male
  Weight: 111.1 kg

DRUGS (1)
  1. BRIDION [Suspect]
     Active Substance: SUGAMMADEX
     Indication: NEUROMUSCULAR BLOCKADE REVERSAL
     Dosage: 200 MG, ONCE, CONCENTRATION: 200 MG/ 2 ML
     Route: 042
     Dates: start: 20180523, end: 20180523

REACTIONS (2)
  - No adverse event [Unknown]
  - Off label use [Unknown]
